FAERS Safety Report 5204630-9 (Version None)
Quarter: 2007Q1

REPORT INFORMATION
  Report Type: 
  Country: None (occurrence: None)
  Receive Date: 20070110
  Receipt Date: 20060530
  Transmission Date: 20070707
  Serious: No
  Sender: FDA-Public Use
  Company Number: US-BRISTOL-MYERS SQUIBB COMPANY-13393731

PATIENT
  Age: 49 Year
  Sex: Male
  Weight: 109 kg

DRUGS (4)
  1. ABILIFY [Suspect]
     Indication: BIPOLAR I DISORDER
  2. DEPAKOTE [Concomitant]
  3. ACTOS [Concomitant]
  4. LITHIUM CARBONATE [Concomitant]

REACTIONS (1)
  - TONGUE DISORDER [None]
